FAERS Safety Report 9032108 (Version 4)
Quarter: 2015Q2

REPORT INFORMATION
  Report Type: Spontaneous
  Country: US (occurrence: US)
  Receive Date: 20130122
  Receipt Date: 20150514
  Transmission Date: 20150821
  Serious: Yes (Life-Threatening, Hospitalization)
  Sender: FDA-Public Use
  Company Number: US-BAYER-2013-006788

PATIENT
  Age: 44 Year
  Sex: Female
  Weight: 83.45 kg

DRUGS (7)
  1. ESCITALOPRAM [Concomitant]
     Active Substance: ESCITALOPRAM OXALATE
     Dosage: UNK
     Dates: start: 200803
  2. BUTALBITAL, ACETAMINOPHEN, AND CAFFEINE [Concomitant]
     Active Substance: ACETAMINOPHEN\BUTALBITAL\CAFFEINE
  3. FIORICET [Concomitant]
     Active Substance: ACETAMINOPHEN\BUTALBITAL\CAFFEINE
  4. YAZ [Suspect]
     Active Substance: DROSPIRENONE\ETHINYL ESTRADIOL
     Indication: MENSTRUAL DISORDER
     Dosage: UNK
     Dates: start: 20071002, end: 20071218
  5. YASMIN [Suspect]
     Active Substance: DROSPIRENONE\ETHINYL ESTRADIOL
     Indication: MENSTRUATION IRREGULAR
     Dosage: UNK
     Dates: start: 20050914, end: 20051214
  6. ZYRTEC [Concomitant]
     Active Substance: CETIRIZINE HYDROCHLORIDE
  7. VICODIN [Concomitant]
     Active Substance: ACETAMINOPHEN\HYDROCODONE BITARTRATE

REACTIONS (9)
  - Product use issue [None]
  - Pain [Recovered/Resolved]
  - Peripheral embolism [None]
  - Injury [Recovered/Resolved]
  - Peripheral artery thrombosis [Recovered/Resolved]
  - Venous thrombosis [None]
  - Peripheral arterial occlusive disease [Recovered/Resolved]
  - Thrombosis in device [None]
  - Subclavian artery thrombosis [Recovered/Resolved]

NARRATIVE: CASE EVENT DATE: 20071217
